FAERS Safety Report 4777811-6 (Version None)
Quarter: 2005Q3

REPORT INFORMATION
  Report Type: 
  Country: None (occurrence: None)
  Receive Date: 20050925
  Receipt Date: 20050914
  Transmission Date: 20060218
  Serious: Yes (Death, Hospitalization)
  Sender: FDA-Public Use
  Company Number: NSADSS2003001943

PATIENT
  Sex: Female

DRUGS (10)
  1. REMICADE [Suspect]
     Route: 041
     Dates: start: 20010724, end: 20021113
  2. REMICADE [Suspect]
     Indication: RHEUMATOID ARTHRITIS
     Route: 041
     Dates: start: 20010724, end: 20021113
  3. IMURAN [Concomitant]
  4. PREDNISONE [Concomitant]
  5. PREVACID [Concomitant]
  6. ZESTRIL [Concomitant]
  7. ULTRACET [Concomitant]
  8. LOPRESSOR [Concomitant]
  9. LIPITOR [Concomitant]
  10. VIOXX [Concomitant]

REACTIONS (5)
  - BRONCHITIS ACUTE [None]
  - ENDOCARDITIS [None]
  - OSTEOMYELITIS [None]
  - PNEUMONIA [None]
  - RESPIRATORY FAILURE [None]
